FAERS Safety Report 17942486 (Version 1)
Quarter: 2020Q2

REPORT INFORMATION
  Report Type: Spontaneous
  Country: MX (occurrence: MX)
  Receive Date: 20200625
  Receipt Date: 20200625
  Transmission Date: 20200714
  Serious: Yes (Disabling)
  Sender: FDA-Public Use
  Company Number: MX-ROCHE-2626417

PATIENT
  Sex: Female

DRUGS (2)
  1. DOCETAXEL. [Concomitant]
     Active Substance: DOCETAXEL
  2. HERCEPTIN [Suspect]
     Active Substance: TRASTUZUMAB
     Indication: BREAST CANCER METASTATIC
     Route: 042
     Dates: start: 201902, end: 201907

REACTIONS (7)
  - Cough [Unknown]
  - Mobility decreased [Unknown]
  - Fatigue [Unknown]
  - Skin disorder [Unknown]
  - Radiation skin injury [Unknown]
  - Weight decreased [Unknown]
  - Dyspnoea [Unknown]
